FAERS Safety Report 9730034 (Version 1)
Quarter: 2013Q4

REPORT INFORMATION
  Report Type: Spontaneous
  Country: FR (occurrence: None)
  Receive Date: 20131203
  Receipt Date: 20131203
  Transmission Date: 20140711
  Serious: Yes (Hospitalization, Other)
  Sender: FDA-Public Use
  Company Number: 2013000315

PATIENT
  Age: 80 Year
  Sex: Female

DRUGS (17)
  1. ACEON (PERINDOPRIL ERBUMINE) TABLET, 2MG [Suspect]
     Indication: PRODUCT USED FOR UNKNOWN INDICATION
     Dosage: 1 DF, QD, ORAL
     Route: 048
     Dates: end: 20130531
  2. LASILIX (FUROSEMIDE) [Suspect]
     Indication: PRODUCT USED FOR UNKNOWN INDICATION
     Route: 048
     Dates: end: 20130531
  3. KARDEGIC (ACETYLSALICYLATE LYSINE) [Concomitant]
  4. PLAVIX (CLOPIDOGREL SULFATE) [Concomitant]
  5. TAHOR (ATORVASTATIN CALCIUM) [Concomitant]
  6. INEXIUM (ESOMEPRAZOLE MAGNESIUM) [Concomitant]
  7. LEVOTHYROX (LEVOTHYROXINE SODIUM) [Concomitant]
  8. DIFFU K (POTASSIUM CHLORIDE) [Concomitant]
  9. CARDENSIEL (BISOPROLOL FUMARATE) [Concomitant]
  10. NORSET (MIRTAZAPINE) [Concomitant]
  11. INSPRA (EPLERENONE) [Concomitant]
  12. LANTUS (INSULIN GLARGINE) [Concomitant]
  13. IMOVANE (ZOPICLONE) [Concomitant]
  14. SPIRIVA (TIOTROPIUM BROMIDE) [Concomitant]
  15. SYMBICORT [Concomitant]
  16. CALCIPARINE (HEPARIN CALCIUM) [Concomitant]
  17. PREVISCAN (FLUINDIONE) [Concomitant]

REACTIONS (8)
  - Dehydration [None]
  - Chest pain [None]
  - Dyspnoea [None]
  - Left ventricular failure [None]
  - Stent placement [None]
  - Troponin increased [None]
  - Chest pain [None]
  - Blood creatinine increased [None]
